FAERS Safety Report 4535841-3 (Version None)
Quarter: 2004Q4

REPORT INFORMATION
  Report Type: 
  Country: None (occurrence: None)
  Receive Date: 20041223
  Receipt Date: 20040416
  Transmission Date: 20050328
  Serious: No
  Sender: FDA-Public Use
  Company Number: US-GLAXOSMITHKLINE-A0507457A

PATIENT
  Sex: Female

DRUGS (1)
  1. FLONASE [Suspect]
     Dosage: 4SPR PER DAY
     Route: 045

REACTIONS (5)
  - EPISTAXIS [None]
  - PARAESTHESIA [None]
  - PAROSMIA [None]
  - PHARMACEUTICAL PRODUCT COMPLAINT [None]
  - RHINORRHOEA [None]
